FAERS Safety Report 8072150-2 (Version None)
Quarter: 2012Q1

REPORT INFORMATION
  Report Type: 
  Country: None (occurrence: None)
  Receive Date: 20120126
  Receipt Date: 20120113
  Transmission Date: 20120608
  Serious: Yes (Hospitalization, Other)
  Sender: FDA-Public Use
  Company Number: FR-ELI_LILLY_AND_COMPANY-FR201109001928

PATIENT
  Age: 81 Year
  Sex: Female
  Weight: 57 kg

DRUGS (5)
  1. SOTALOL HCL [Concomitant]
     Indication: HYPERTENSION
     Dosage: UNK
  2. TRIMETAZIDINE [Concomitant]
     Indication: VERTIGO
     Dosage: UNK
  3. PANTOPRAZOLE [Concomitant]
     Indication: OESOPHAGEAL DISORDER
     Dosage: UNK
  4. ASPIRIN [Concomitant]
     Dosage: UNK
  5. CYMBALTA [Suspect]
     Indication: ANTIDEPRESSANT THERAPY
     Dosage: 60 MG, QD
     Route: 048
     Dates: end: 20110103

REACTIONS (1)
  - SUPRAVENTRICULAR EXTRASYSTOLES [None]
